FAERS Safety Report 4839533-2 (Version None)
Quarter: 2005Q4

REPORT INFORMATION
  Report Type: 
  Country: None (occurrence: None)
  Receive Date: 20051129
  Receipt Date: 20051116
  Transmission Date: 20060501
  Serious: Yes (Other)
  Sender: FDA-Public Use
  Company Number: JP-MERCK-0511USA03451

PATIENT

DRUGS (6)
  1. HYDROCORTONE INJECTION [Suspect]
     Route: 051
  2. HYDELTRASOL [Suspect]
     Route: 065
  3. VINCRISTINE SULFATE [Suspect]
     Route: 065
  4. ANTIMICROBIAL (UNSPECIFIED) [Suspect]
     Route: 065
  5. METHOTREXATE [Suspect]
     Route: 065
  6. ELSPAR [Suspect]
     Route: 051

REACTIONS (1)
  - CONVULSION [None]
